FAERS Safety Report 13854137 (Version 2)
Quarter: 2017Q3

REPORT INFORMATION
  Report Type: Spontaneous
  Country: LB (occurrence: LB)
  Receive Date: 20170810
  Receipt Date: 20170817
  Transmission Date: 20171127
  Serious: No
  Sender: FDA-Public Use
  Company Number: LB-PFIZER INC-2017347331

PATIENT
  Age: 55 Year
  Sex: Male

DRUGS (9)
  1. ALDACTONE [Suspect]
     Active Substance: SPIRONOLACTONE
     Indication: GLOMERULONEPHRITIS
  2. APROVEL [Suspect]
     Active Substance: IRBESARTAN
     Indication: PROTEINURIA
     Dosage: UNK
     Route: 048
  3. CELLCEPT [Concomitant]
     Active Substance: MYCOPHENOLATE MOFETIL\MYCOPHENOLATE MOFETIL HYDROCHLORIDE
     Indication: IMMUNOSUPPRESSANT DRUG THERAPY
     Dosage: 2 G, DAILY
  4. ANTITHYMOCYTE IMMUNOGLOBULIN (RABBIT) [Concomitant]
     Active Substance: LAPINE T-LYMPHOCYTE IMMUNE GLOBULIN
     Indication: RENAL TRANSPLANT
     Dosage: UNK
  5. TRITACE [Suspect]
     Active Substance: RAMIPRIL
     Indication: PROTEINURIA
     Dosage: 10 MG, DAILY
     Route: 048
  6. APROVEL [Suspect]
     Active Substance: IRBESARTAN
     Indication: GLOMERULONEPHRITIS
  7. PROGRAF [Concomitant]
     Active Substance: TACROLIMUS\TACROLIMUS ANHYDROUS
     Indication: IMMUNOSUPPRESSANT DRUG THERAPY
     Dosage: UNK
  8. ALDACTONE [Suspect]
     Active Substance: SPIRONOLACTONE
     Indication: PROTEINURIA
     Dosage: UNK
     Route: 065
  9. PREDNISONE. [Concomitant]
     Active Substance: PREDNISONE
     Indication: IMMUNOSUPPRESSANT DRUG THERAPY
     Dosage: 5 MG, DAILY

REACTIONS (1)
  - Off label use [Unknown]
